FAERS Safety Report 4545036-5 (Version None)
Quarter: 2005Q1

REPORT INFORMATION
  Report Type: 
  Country: None (occurrence: None)
  Receive Date: 20050104
  Receipt Date: 20041222
  Transmission Date: 20050727
  Serious: Yes (Hospitalization, Other)
  Sender: FDA-Public Use
  Company Number: KII-2004-0014406

PATIENT
  Age: 17 Year
  Sex: Male

DRUGS (4)
  1. OXYCODONE HCL [Suspect]
     Dosage: ORAL
     Route: 048
  2. CARBON MONOXIDE [Concomitant]
     Dosage: INHALATION
     Route: 055
  3. BENZODIAZEPINE DERIVATIVES [Suspect]
     Dosage: ORAL
     Route: 048
  4. ACETAMINOPHEN AND HYDROCODONE BITARTRATE [Suspect]
     Dosage: ORAL
     Route: 048

REACTIONS (10)
  - ASPARTATE AMINOTRANSFERASE ABNORMAL [None]
  - ASPARTATE AMINOTRANSFERASE INCREASED [None]
  - BLOOD CARBON MONOXIDE ABNORMAL [None]
  - COMA [None]
  - HEADACHE [None]
  - MULTIPLE DRUG OVERDOSE [None]
  - NAUSEA [None]
  - SOMNOLENCE [None]
  - VOMITING [None]
  - WHITE BLOOD CELL COUNT INCREASED [None]
